FAERS Safety Report 10377983 (Version 1)
Quarter: 2014Q3

REPORT INFORMATION
  Report Type: Spontaneous
  Country: IT (occurrence: IT)
  Receive Date: 20140812
  Receipt Date: 20140812
  Transmission Date: 20150326
  Serious: Yes (Other)
  Sender: FDA-Public Use
  Company Number: IT-MYLAN-2014M1000988

PATIENT

DRUGS (2)
  1. AMIODARONE [Suspect]
     Active Substance: AMIODARONE
     Dosage: 200 MG DAILY SIX DAYS A WEEK FOR 36 MONTHS
     Route: 065
  2. HYDROCHLOROTHIAZIDE. [Suspect]
     Active Substance: HYDROCHLOROTHIAZIDE
     Route: 065

REACTIONS (3)
  - Neuropathy peripheral [Not Recovered/Not Resolved]
  - Peripheral sensorimotor neuropathy [None]
  - Optic neuropathy [Recovered/Resolved]
